FAERS Safety Report 13629749 (Version 1)
Quarter: 2017Q2

REPORT INFORMATION
  Report Type: Spontaneous
  Country: PT (occurrence: PT)
  Receive Date: 20170608
  Receipt Date: 20170608
  Transmission Date: 20170830
  Serious: Yes (Other)
  Sender: FDA-Public Use
  Company Number: PT-ABBVIE-17K-130-1997444-00

PATIENT
  Age: 66 Year

DRUGS (1)
  1. LEVODOPA/CARBIDOPA [Suspect]
     Active Substance: CARBIDOPA\LEVODOPA
     Indication: PARKINSON^S DISEASE
     Route: 050

REACTIONS (6)
  - Weight decreased [Recovering/Resolving]
  - Blood homocysteine increased [Unknown]
  - Vitamin B6 deficiency [Unknown]
  - Vitamin D deficiency [Unknown]
  - Pneumonia [Recovered/Resolved]
  - Peripheral sensory neuropathy [Recovered/Resolved]
